FAERS Safety Report 17094339 (Version 2)
Quarter: 2019Q4

REPORT INFORMATION
  Report Type: Spontaneous
  Country: US (occurrence: US)
  Receive Date: 20191129
  Receipt Date: 20191209
  Transmission Date: 20200122
  Serious: No
  Sender: FDA-Public Use
  Company Number: US-ASTRAZENECA-2019SF70410

PATIENT
  Sex: Female

DRUGS (1)
  1. NEXIUM 24HR [Suspect]
     Active Substance: ESOMEPRAZOLE MAGNESIUM
     Dosage: 1 DF, EVERY DAY (ONE A DAY BEFORE DINNER)
     Route: 048

REACTIONS (2)
  - Inappropriate schedule of product administration [Unknown]
  - Rash pruritic [Recovered/Resolved]
